FAERS Safety Report 22089859 (Version 1)
Quarter: 2023Q1

REPORT INFORMATION
  Report Type: Spontaneous
  Country: ES (occurrence: ES)
  Receive Date: 20230313
  Receipt Date: 20230313
  Transmission Date: 20230418
  Serious: Yes (Hospitalization)
  Sender: FDA-Public Use
  Company Number: ES-Accord-301238

PATIENT
  Age: 67 Year
  Sex: Male
  Weight: 87.3 kg

DRUGS (13)
  1. OXALIPLATIN [Suspect]
     Active Substance: OXALIPLATIN
     Indication: Product used for unknown indication
     Dosage: 1Q2W
     Dates: start: 20230118
  2. OXALIPLATIN [Suspect]
     Active Substance: OXALIPLATIN
     Dosage: 1Q2WLAST DOSE 28-DEC-2022
     Dates: start: 20221228
  3. GEMCITABINE [Suspect]
     Active Substance: GEMCITABINE
     Indication: Product used for unknown indication
     Dosage: 1Q2W?LAST DOSE 28-DEC-2022
     Dates: start: 20221228
  4. GEMCITABINE [Suspect]
     Active Substance: GEMCITABINE
     Dosage: 1Q2W
     Dates: start: 20230118
  5. EPCORITAMAB [Suspect]
     Active Substance: EPCORITAMAB
     Indication: Product used for unknown indication
     Dosage: RE-PRIMING DOSE: 0.16 MILLIGRAM, SINGLE?ROA-20066000?LAST DOSE 18-JAN-2023
     Route: 058
     Dates: start: 20230118
  6. EPCORITAMAB [Suspect]
     Active Substance: EPCORITAMAB
     Dosage: PRIMING DOSE: 0.16MILLIGRAM, SINGLE?LAST DOSE 28-DEC-2022?ROA-20066000
     Route: 058
     Dates: start: 20221228
  7. EPCORITAMAB [Suspect]
     Active Substance: EPCORITAMAB
     Dosage: FULL DOSE: 48 MILLIGRAM, WEEKLY?ROA-20066000
     Route: 058
     Dates: start: 20230201
  8. EPCORITAMAB [Suspect]
     Active Substance: EPCORITAMAB
     Dosage: INTERMEDIATE DOSE: 0.8 MILLIGRAM, SINGLE?ROA-20066000?LAST DOSE 25-JAN-2023
     Route: 058
     Dates: start: 20230125
  9. ONDANSETRON [Concomitant]
     Active Substance: ONDANSETRON
     Indication: Product used for unknown indication
     Dosage: 16 MG?LAST DOSE 01-FEB-2023
     Dates: start: 20230201
  10. DEXAMETHASONE [Concomitant]
     Active Substance: DEXAMETHASONE
     Indication: Product used for unknown indication
     Dosage: 12 MG AND 16 MG?LAST DOSE 01-FEB-2023
     Dates: start: 20230201
  11. DEXAMETHASONE [Concomitant]
     Active Substance: DEXAMETHASONE
     Dosage: 16MG
     Route: 048
     Dates: start: 20230202
  12. ACETAMINOPHEN [Concomitant]
     Active Substance: ACETAMINOPHEN
     Indication: Product used for unknown indication
     Dosage: LAST DOSE 01-FEB-2023
     Dates: start: 20230201
  13. DEXCHLORPHENIRAMINE [Concomitant]
     Active Substance: DEXCHLORPHENIRAMINE
     Indication: Product used for unknown indication
     Dosage: 5 MG?LAST DOSE 01-FEB-2023
     Dates: start: 20230201

REACTIONS (1)
  - Cytokine release syndrome [Recovered/Resolved]

NARRATIVE: CASE EVENT DATE: 20230202
